FAERS Safety Report 8856959 (Version 2)
Quarter: 2013Q1

REPORT INFORMATION
  Report Type: Spontaneous
  Country: DK (occurrence: None)
  Receive Date: 20121019
  Receipt Date: 20130124
  Transmission Date: 20140127
  Serious: Yes (Other)
  Sender: FDA-Public Use
  Company Number: 2012MA012307

PATIENT
  Age: 70 Year
  Sex: Male

DRUGS (7)
  1. DOXAZOSIN MESYLATE [Suspect]
     Dates: start: 200903
  2. CLOPIDOGREL [Suspect]
     Dates: start: 201110
  3. LANSOPRAZOLE (LANSOPRAZOLE) [Suspect]
     Dates: start: 20120903
  4. ACETYLSALICYLIC ACID [Concomitant]
  5. ATORVASTATIN [Concomitant]
  6. ENALAPRIL [Concomitant]
  7. AMLODIPINE [Concomitant]

REACTIONS (6)
  - Drug effect decreased [None]
  - Nocturia [None]
  - Contusion [None]
  - Epistaxis [None]
  - Drug interaction [None]
  - Wound haemorrhage [None]
